FAERS Safety Report 11264602 (Version 2)
Quarter: 2015Q3

REPORT INFORMATION
  Report Type: Spontaneous
  Country: IT (occurrence: IT)
  Receive Date: 20150713
  Receipt Date: 20150721
  Transmission Date: 20151125
  Serious: Yes (Hospitalization)
  Sender: FDA-Public Use
  Company Number: IT-TEVA-576862ACC

PATIENT
  Age: 68 Year
  Sex: Male

DRUGS (2)
  1. FENTANYL. [Suspect]
     Active Substance: FENTANYL
     Indication: PAIN
     Dosage: 25 UG, EVERY OTHER DAY (EVERY 72 HOURS)
     Route: 062
     Dates: start: 20150630, end: 20150703
  2. ZESTRIL [Concomitant]
     Active Substance: LISINOPRIL
     Indication: BENIGN PROSTATIC HYPERPLASIA

REACTIONS (6)
  - Vomiting [Recovering/Resolving]
  - Back pain [Unknown]
  - Constipation [Unknown]
  - Ileus paralytic [Recovering/Resolving]
  - Chest pain [Unknown]
  - Abdominal pain [Unknown]

NARRATIVE: CASE EVENT DATE: 20150701
